FAERS Safety Report 9886375 (Version 1)
Quarter: 2014Q1

REPORT INFORMATION
  Report Type: Spontaneous
  Country: IT (occurrence: IT)
  Receive Date: 20140210
  Receipt Date: 20140210
  Transmission Date: 20141002
  Serious: Yes (Hospitalization)
  Sender: FDA-Public Use
  Company Number: IT-PFIZER INC-2014036578

PATIENT
  Age: 49 Year
  Sex: Male

DRUGS (2)
  1. SUTENT [Suspect]
     Indication: PANCREATIC NEUROENDOCRINE TUMOUR
     Dosage: 37.5 MG, 1X/DAY
     Route: 048
     Dates: start: 201303, end: 201401
  2. LANREOTIDE ACETATE [Concomitant]
     Indication: PANCREATIC NEUROENDOCRINE TUMOUR
     Dosage: 120 MG (ONE VIAL), CYCLIC (EVERY 28 DAYS)

REACTIONS (4)
  - Abdominal pain [Not Recovered/Not Resolved]
  - Fistula [Not Recovered/Not Resolved]
  - Necrosis [Not Recovered/Not Resolved]
  - Abdominal abscess [Not Recovered/Not Resolved]
